FAERS Safety Report 20030628 (Version 1)
Quarter: 2021Q4

REPORT INFORMATION
  Report Type: Spontaneous
  Country: FR (occurrence: FR)
  Receive Date: 20211103
  Receipt Date: 20211103
  Transmission Date: 20220303
  Serious: Yes (Other)
  Sender: FDA-Public Use
  Company Number: FR-JNJFOC-20211049000

PATIENT
  Sex: Female

DRUGS (1)
  1. NICORETTE [Suspect]
     Active Substance: NICOTINE
     Indication: Product used for unknown indication
     Dosage: AT LEAST 20 TIMES A DAY (4MG RED FRUITS)
     Route: 048

REACTIONS (3)
  - Deafness [Not Recovered/Not Resolved]
  - Drug abuse [Unknown]
  - Incorrect product administration duration [Not Recovered/Not Resolved]
